FAERS Safety Report 10142473 (Version 2)
Quarter: 2014Q2

REPORT INFORMATION
  Report Type: Spontaneous
  Country: US (occurrence: US)
  Receive Date: 20140430
  Receipt Date: 20140430
  Transmission Date: 20141212
  Serious: No
  Sender: FDA-Public Use
  Company Number: US-BIOGENIDEC-2014BI010716

PATIENT
  Age: 33 Year
  Sex: Female

DRUGS (3)
  1. AVONEX [Suspect]
     Indication: MULTIPLE SCLEROSIS
     Route: 030
     Dates: start: 20140130
  2. LAMICTAL [Concomitant]
  3. KLONOPIN [Concomitant]

REACTIONS (2)
  - Psychogenic seizure [Recovered/Resolved]
  - Influenza like illness [Recovered/Resolved]
